FAERS Safety Report 15948589 (Version 1)
Quarter: 2019Q1

REPORT INFORMATION
  Report Type: Spontaneous
  Country: FR (occurrence: FR)
  Receive Date: 20190212
  Receipt Date: 20190212
  Transmission Date: 20190417
  Serious: Yes (Hospitalization)
  Sender: FDA-Public Use
  Company Number: FR-ACCORD-106575

PATIENT
  Age: 75 Year
  Sex: Male
  Weight: 61 kg

DRUGS (13)
  1. FOLINIC ACID [Concomitant]
     Active Substance: LEUCOVORIN
     Indication: PREMEDICATION
     Route: 042
  2. INEXIUM [Concomitant]
     Active Substance: ESOMEPRAZOLE
     Dosage: 40 MG, GASTRO-RESISTANT TABLET
  3. DOCETAXEL. [Suspect]
     Active Substance: DOCETAXEL
     Indication: GASTRIC CANCER
     Route: 041
     Dates: start: 20180529, end: 20180529
  4. MAGNESIUM SULFATE RENAUDIN [Concomitant]
     Indication: PREMEDICATION
  5. AVODART [Concomitant]
     Active Substance: DUTASTERIDE
     Dosage: 0,5 MG, CAPSULE MOLLE
  6. EMEND [Concomitant]
     Active Substance: APREPITANT
     Indication: PROPHYLAXIS OF NAUSEA AND VOMITING
  7. PRIMPERAN [Concomitant]
     Active Substance: METOCLOPRAMIDE HYDROCHLORIDE
     Dosage: 10 MG, SCORED TABLET
  8. SPASFON [Concomitant]
  9. METHYLPREDNISOLONE MYLAN [Concomitant]
     Active Substance: METHYLPREDNISOLONE
     Indication: PREMEDICATION
     Route: 048
     Dates: start: 20171123, end: 20180529
  10. CLOPIDOGREL [Concomitant]
     Active Substance: CLOPIDOGREL BISULFATE
  11. PAROEX [Concomitant]
     Active Substance: CHLORHEXIDINE GLUCONATE
  12. OXALIPLATINE ACCORD [Suspect]
     Active Substance: OXALIPLATIN
     Indication: GASTRIC CANCER
     Dosage: 5 MG/ML CONCENTRATE FOR SOLUTION FOR INFUSION
     Route: 041
     Dates: start: 20180529, end: 20180529
  13. ZOPHREN [Concomitant]
     Active Substance: ONDANSETRON
     Indication: PROPHYLAXIS OF NAUSEA AND VOMITING
     Dosage: 8 MG / 4 ML SOLUTION FOR INJECTION IN PRE-FILLED SYRINGE

REACTIONS (5)
  - Rash pruritic [Recovered/Resolved]
  - Malaise [Recovered/Resolved]
  - Electrocardiogram ST-T change [Recovered/Resolved]
  - Brain natriuretic peptide increased [Not Recovered/Not Resolved]
  - Troponin increased [Not Recovered/Not Resolved]

NARRATIVE: CASE EVENT DATE: 20180529
